FAERS Safety Report 10597931 (Version 1)
Quarter: 2014Q4

REPORT INFORMATION
  Report Type: Spontaneous
  Country: US (occurrence: None)
  Receive Date: 20141120
  Receipt Date: 20141120
  Transmission Date: 20150529
  Serious: Yes (Other)
  Sender: FDA-Public Use
  Company Number: None

PATIENT
  Age: 64 Year
  Sex: Female
  Weight: 121.11 kg

DRUGS (1)
  1. PROAIR HFA [Suspect]
     Active Substance: ALBUTEROL SULFATE
     Indication: PNEUMONIA
     Dosage: 2 PUFFS EVERY 6 HOURS  FOUR TIMES DAILY  TAKEN BY MOUTH
     Route: 048
     Dates: start: 20141031, end: 20141110

REACTIONS (1)
  - Device failure [None]

NARRATIVE: CASE EVENT DATE: 20141118
